FAERS Safety Report 11766394 (Version 1)
Quarter: 2015Q4

REPORT INFORMATION
  Report Type: Spontaneous
  Country: FR (occurrence: FR)
  Receive Date: 20151123
  Receipt Date: 20151123
  Transmission Date: 20160304
  Serious: Yes (Hospitalization)
  Sender: FDA-Public Use
  Company Number: FR-009507513-1511FRA008610

PATIENT
  Age: 21 Year
  Sex: Female

DRUGS (3)
  1. FOLLITROPIN BETA [Suspect]
     Active Substance: FOLLITROPIN
     Dosage: 125 IU, QD
     Route: 058
     Dates: start: 20150807, end: 20150817
  2. OVITRELLE [Suspect]
     Active Substance: CHORIOGONADOTROPIN ALFA
     Dosage: 1 DF, ONCE
     Route: 058
     Dates: start: 20150816
  3. ORGALUTRAN [Suspect]
     Active Substance: GANIRELIX ACETATE
     Dosage: 1 DF, QD  (STRENGTH 0.25MG/0.5ML)
     Route: 058
     Dates: start: 201508, end: 201508

REACTIONS (3)
  - Pleural effusion [Recovered/Resolved]
  - Ovarian hyperstimulation syndrome [Recovered/Resolved]
  - Ascites [Recovered/Resolved]

NARRATIVE: CASE EVENT DATE: 20150829
